FAERS Safety Report 10621294 (Version 1)
Quarter: 2014Q4

REPORT INFORMATION
  Report Type: Report from Study
  Country: NL (occurrence: NL)
  Receive Date: 20141203
  Receipt Date: 20141203
  Transmission Date: 20150529
  Serious: Yes (Death, Other)
  Sender: FDA-Public Use
  Company Number: NL-AMGEN-NLDSL2013094623

PATIENT
  Age: 69 Year
  Sex: Female

DRUGS (2)
  1. TAMOXIFEN [Concomitant]
     Active Substance: TAMOXIFEN
  2. XGEVA [Suspect]
     Active Substance: DENOSUMAB
     Indication: PRODUCT USED FOR UNKNOWN INDICATION
     Dosage: 1.7 ML (70MG/ML), Q4WK
     Route: 065
     Dates: start: 20121015

REACTIONS (33)
  - Skin mass [Unknown]
  - Depression [Unknown]
  - Feeling abnormal [Unknown]
  - Death [Fatal]
  - Metastases to liver [Unknown]
  - Wound [Unknown]
  - Arthralgia [Unknown]
  - Pain in extremity [Unknown]
  - Bone pain [Unknown]
  - Sense of oppression [Unknown]
  - Weight decreased [Unknown]
  - Peripheral swelling [Unknown]
  - Hypoaesthesia [Unknown]
  - Liver function test abnormal [Unknown]
  - Erythema [Unknown]
  - Nausea [Unknown]
  - Fall [Unknown]
  - Lymphoedema [Unknown]
  - Mobility decreased [Unknown]
  - General physical health deterioration [Unknown]
  - Metastases to central nervous system [Unknown]
  - Haemoglobin decreased [Unknown]
  - Impaired healing [Unknown]
  - Hypersomnia [Unknown]
  - Rash macular [Unknown]
  - Contusion [Unknown]
  - Periorbital contusion [Unknown]
  - Vomiting [Unknown]
  - Fatigue [Unknown]
  - Blister [Unknown]
  - Rash pustular [Unknown]
  - Headache [Unknown]
  - Panic attack [Unknown]
